FAERS Safety Report 10176143 (Version 1)
Quarter: 2014Q2

REPORT INFORMATION
  Report Type: Spontaneous
  Country: US (occurrence: None)
  Receive Date: 20140416
  Receipt Date: 20140416
  Transmission Date: 20141212
  Serious: Yes (Other)
  Sender: FDA-Public Use
  Company Number: 163-POMAL-14020389

PATIENT
  Age: 60 Year
  Sex: Female
  Weight: 131.54 kg

DRUGS (14)
  1. POMALYST [Suspect]
     Indication: PLASMA CELL MYELOMA
     Dosage: 21 IN 21 D
     Route: 048
     Dates: start: 20131227
  2. COUMADIN (WARFARIN SODIUM) (TABLETS) [Concomitant]
  3. NEVANAC (NEPAFENAC) (DROPS) [Concomitant]
  4. NIASPAN (NICOTINIC ACID) (TABLETS) [Concomitant]
  5. DIOVAN HCT (CO-DIOVAN) (TABLETS) [Concomitant]
  6. METFORMIN HCL ER (METORMIN HYDROCHLORIDE) (TABLETS) [Concomitant]
  7. GLYBURIDE (GLIBENCLAMIDE) (TABLETS) [Concomitant]
  8. PRILOSEC (OMPRAZOLE) (CAPSULES) [Concomitant]
  9. POTASSIUM (POTASSIUM) (TABLETS) [Concomitant]
  10. CALCIUM (CALCIUM) [Concomitant]
  11. DUREZOL (DIFLUPREDNATE) [Concomitant]
  12. MULTIVITAMINS (MULTIVITAMINS) [Concomitant]
  13. OSCAL (CALCIUM CARBONATE) [Concomitant]
  14. ZOCOR (SIMVASTATIN) [Concomitant]

REACTIONS (1)
  - Haemoglobin decreased [None]
